FAERS Safety Report 7708356-9 (Version None)
Quarter: 2011Q3

REPORT INFORMATION
  Report Type: 
  Country: None (occurrence: None)
  Receive Date: 20110819
  Receipt Date: 20110804
  Transmission Date: 20111222
  Serious: Yes (Other)
  Sender: FDA-Public Use
  Company Number: ALK_01823_2011

PATIENT

DRUGS (1)
  1. VIVITROL [Suspect]
     Indication: PRODUCT USED FOR UNKNOWN INDICATION
     Dosage: (380 MG 1X/MONTH INTRAMUSCULAR)
     Route: 030

REACTIONS (1)
  - INJECTION SITE ABSCESS [None]
